FAERS Safety Report 9407190 (Version 1)
Quarter: 2013Q3

REPORT INFORMATION
  Report Type: Spontaneous
  Country: FR (occurrence: FR)
  Receive Date: 20130718
  Receipt Date: 20130718
  Transmission Date: 20140515
  Serious: Yes (Other)
  Sender: FDA-Public Use
  Company Number: FR-BAYER-2013-086559

PATIENT
  Age: 61 Year
  Sex: Female

DRUGS (2)
  1. GADOVIST [Suspect]
     Dosage: 2 ML, ONCE
     Route: 042
     Dates: start: 20130527, end: 20130527
  2. GLUCOSE [Suspect]
     Dosage: 1 DF, QD
     Route: 042
     Dates: start: 20130527, end: 20130527

REACTIONS (2)
  - Extravasation [Recovered/Resolved]
  - Oedema [Recovered/Resolved]
